FAERS Safety Report 16069437 (Version 6)
Quarter: 2020Q1

REPORT INFORMATION
  Report Type: Spontaneous
  Country: US (occurrence: US)
  Receive Date: 20190313
  Receipt Date: 20200218
  Transmission Date: 20200409
  Serious: Yes (Other)
  Sender: FDA-Public Use
  Company Number: US-SA-2019SA066108

PATIENT
  Age: 20 Year
  Sex: Female

DRUGS (2)
  1. ESOMEPRA [Concomitant]
     Active Substance: ESOMEPRAZOLE
  2. DUPIXENT [Suspect]
     Active Substance: DUPILUMAB
     Indication: DERMATITIS ATOPIC
     Dosage: 300 MG, QOW
     Route: 058
     Dates: start: 20181219

REACTIONS (4)
  - Eye infection [Recovered/Resolved]
  - Dermatitis atopic [Not Recovered/Not Resolved]
  - Conjunctivitis [Recovered/Resolved]
  - Product dose omission [Unknown]

NARRATIVE: CASE EVENT DATE: 20190301
